FAERS Safety Report 7652322-9 (Version None)
Quarter: 2011Q3

REPORT INFORMATION
  Report Type: 
  Country: None (occurrence: None)
  Receive Date: 20110803
  Receipt Date: 20110726
  Transmission Date: 20111222
  Serious: Yes (Hospitalization)
  Sender: FDA-Public Use
  Company Number: FR-KINGPHARMUSA00001-K201100887

PATIENT
  Age: 75 Year
  Sex: Female

DRUGS (9)
  1. ISOPTIN [Concomitant]
     Indication: HYPERTENSIVE CARDIOMYOPATHY
  2. PAROXETINE HYDROCHLORIDE [Concomitant]
  3. ALTACE [Suspect]
     Indication: HYPERTENSION
     Dosage: UNK
     Route: 048
     Dates: start: 20110417, end: 20110708
  4. KANRENOL [Suspect]
     Indication: HYPERTENSION
     Dosage: 1 DF, QD
     Route: 048
     Dates: start: 20110417
  5. MINITRAN [Concomitant]
     Dosage: UNK
     Dates: start: 20110528
  6. LASIX [Concomitant]
     Dosage: UNK
     Dates: start: 20090707
  7. COUMADIN [Concomitant]
     Indication: ATRIAL FIBRILLATION
     Dosage: UNK
     Dates: start: 20101201
  8. PANTOPRAZOLE SODIUM [Concomitant]
  9. SPIRIVA [Concomitant]

REACTIONS (3)
  - HIP FRACTURE [None]
  - FALL [None]
  - SYNCOPE [None]
